FAERS Safety Report 4404301-2 (Version None)
Quarter: 2004Q3

REPORT INFORMATION
  Report Type: 
  Country: None (occurrence: None)
  Receive Date: 20040719
  Receipt Date: 20040705
  Transmission Date: 20050211
  Serious: Yes (Hospitalization)
  Sender: FDA-Public Use
  Company Number: 2004222451FR

PATIENT
  Age: 64 Year
  Sex: Female

DRUGS (4)
  1. SOLU-MEDROL [Suspect]
     Indication: BREAST NEOPLASM
     Dosage: UNK, UNK, IV
     Route: 042
     Dates: start: 20040407
  2. EPIRUBICIN [Suspect]
     Indication: BREAST NEOPLASM
     Dosage: UNK, UNK, IV
     Route: 042
     Dates: start: 20040407
  3. CYCLOPHOSPHAMIDE [Suspect]
     Indication: BREAST NEOPLASM
     Dosage: UNK, IV
     Route: 042
     Dates: start: 20040407, end: 20040410
  4. FLUOROURACIL [Suspect]
     Indication: BREAST NEOPLASM
     Dosage: UNK, UNK
     Dates: start: 20040407

REACTIONS (2)
  - INFECTIVE MYOSITIS [None]
  - STAPHYLOCOCCAL INFECTION [None]
